FAERS Safety Report 25878505 (Version 1)
Quarter: 2025Q4

REPORT INFORMATION
  Report Type: Spontaneous
  Country: US (occurrence: None)
  Receive Date: 20251002
  Receipt Date: 20251002
  Transmission Date: 20260117
  Serious: Yes (Disabling, Other)
  Sender: FDA-CTU
  Company Number: None

PATIENT
  Age: 72 Year
  Sex: Female
  Weight: 71.67 kg

DRUGS (7)
  1. REPATHA [Suspect]
     Active Substance: EVOLOCUMAB
     Indication: Blood cholesterol increased
     Dosage: 1 INJECTION 2 X MONTH INJECTION
     Route: 050
     Dates: start: 20250115, end: 20250415
  2. Losartan Potassium - HCTZ 100-25mg [Concomitant]
  3. Blood pressure machine [Concomitant]
  4. D3 1000m 8 [Concomitant]
  5. TYLENOL 8 HR ARTHRITIS PAIN [Concomitant]
     Active Substance: ACETAMINOPHEN
  6. MAGNESIUM GLYCINATE [Concomitant]
     Active Substance: MAGNESIUM GLYCINATE
  7. Vitamin K2 MK7 [Concomitant]

REACTIONS (3)
  - Lymphadenopathy [None]
  - Lymph node pain [None]
  - Myalgia [None]

NARRATIVE: CASE EVENT DATE: 20250115
